FAERS Safety Report 16479435 (Version 3)
Quarter: 2019Q4

REPORT INFORMATION
  Report Type: Report from Study
  Country: None (occurrence: RO)
  Receive Date: 20190626
  Receipt Date: 20191119
  Transmission Date: 20200122
  Serious: Yes (Death)
  Sender: FDA-Public Use
  Company Number: RO-ABBVIE-19S-135-2832652-00

PATIENT
  Age: 66 Year
  Sex: Female

DRUGS (8)
  1. VIEKIRAX [Suspect]
     Active Substance: OMBITASVIR\PARITAPREVIR\RITONAVIR
     Indication: HEPATIC CIRRHOSIS
  2. FAMOTIDINE. [Concomitant]
     Active Substance: FAMOTIDINE
     Indication: GASTRITIS
     Route: 048
  3. TERTENSIF [Concomitant]
     Active Substance: INDAPAMIDE
     Indication: ESSENTIAL HYPERTENSION
     Route: 048
  4. GABARAN [Concomitant]
     Active Substance: GABAPENTIN
     Indication: EPILEPSY
     Route: 048
  5. EXVIERA [Suspect]
     Active Substance: DASABUVIR
     Indication: HEPATITIS C
     Route: 048
     Dates: start: 20181207, end: 20190228
  6. EXVIERA [Suspect]
     Active Substance: DASABUVIR
     Indication: HEPATIC CIRRHOSIS
  7. LYRICA [Concomitant]
     Active Substance: PREGABALIN
     Indication: EPILEPSY
     Route: 048
  8. VIEKIRAX [Suspect]
     Active Substance: OMBITASVIR\PARITAPREVIR\RITONAVIR
     Indication: HEPATITIS C
     Route: 048
     Dates: start: 20181207, end: 20190228

REACTIONS (5)
  - Lung adenocarcinoma [Fatal]
  - Cardiogenic shock [Fatal]
  - Cardio-respiratory arrest [Fatal]
  - Arteriosclerosis [Fatal]
  - Myocardial infarction [Fatal]

NARRATIVE: CASE EVENT DATE: 20190524
